FAERS Safety Report 10150027 (Version 2)
Quarter: 2014Q2

REPORT INFORMATION
  Report Type: Report from Study
  Country: US (occurrence: US)
  Receive Date: 20140502
  Receipt Date: 20140630
  Transmission Date: 20141212
  Serious: Yes (Hospitalization)
  Sender: FDA-Public Use
  Company Number: US-GLAXOSMITHKLINE-A1071650A

PATIENT
  Sex: Female

DRUGS (4)
  1. OFATUMUMAB [Suspect]
     Indication: B-CELL LYMPHOMA
     Route: 042
     Dates: start: 20140412
  2. BENDAMUSTINE [Suspect]
     Indication: B-CELL LYMPHOMA
     Dates: start: 20140412
  3. CARBOPLATIN [Suspect]
     Indication: B-CELL LYMPHOMA
     Dates: start: 20140412
  4. ETOPOSIDE [Suspect]
     Indication: B-CELL LYMPHOMA
     Dates: start: 20140412

REACTIONS (6)
  - Febrile neutropenia [Recovered/Resolved]
  - Pneumonia klebsiella [Recovered/Resolved]
  - Klebsiella bacteraemia [Recovered/Resolved]
  - Urinary tract infection [Recovered/Resolved]
  - Clostridium difficile infection [Recovered/Resolved]
  - Cardiac failure [Recovered/Resolved]
